FAERS Safety Report 24293019 (Version 1)
Quarter: 2024Q3

REPORT INFORMATION
  Report Type: Spontaneous
  Country: US (occurrence: None)
  Receive Date: 20240906
  Receipt Date: 20240906
  Transmission Date: 20241016
  Serious: No
  Sender: DOMPE FARMACEUTICI
  Company Number: US-FARMAPROD-202311-3312

PATIENT
  Age: 67 Year
  Sex: Female
  Weight: 103.87 kg

DRUGS (28)
  1. OXERVATE [Suspect]
     Active Substance: CENEGERMIN-BKBJ
     Indication: Neurotrophic keratopathy
     Route: 047
     Dates: start: 20231103, end: 20240101
  2. OXERVATE [Suspect]
     Active Substance: CENEGERMIN-BKBJ
  3. ACYCLOVIR [Concomitant]
     Active Substance: ACYCLOVIR
  4. AMMONIUM LACTATE [Concomitant]
     Active Substance: AMMONIUM LACTATE
  5. CLOBETASOL PROPIONATE [Concomitant]
     Active Substance: CLOBETASOL PROPIONATE
  6. SODIUM CHLORIDE [Concomitant]
     Active Substance: SODIUM CHLORIDE
  7. KETOROLAC TROMETHAMINE [Concomitant]
     Active Substance: KETOROLAC TROMETHAMINE
  8. METRONIDAZOLE [Concomitant]
     Active Substance: METRONIDAZOLE
  9. TRIAMCINOLONE ACETONIDE [Concomitant]
     Active Substance: TRIAMCINOLONE ACETONIDE
  10. ERYTHROMYCIN [Concomitant]
     Active Substance: ERYTHROMYCIN
  11. ALBUTEROL SULFATE [Concomitant]
     Active Substance: ALBUTEROL SULFATE
     Dosage: HYDROFLUORALKANE, AEROSOL WITH ADAPTER
  12. TRAMADOL HCL [Concomitant]
     Active Substance: TRAMADOL HYDROCHLORIDE
  13. DOXYCYCLINE HYCLATE [Concomitant]
     Active Substance: DOXYCYCLINE HYCLATE
  14. QVAR REDIHALER HFA [Concomitant]
     Dosage: BREATH ACTIVATED
  15. BUPROPION [Concomitant]
     Active Substance: BUPROPION
     Dosage: EXTENDED RELEASE 24 HOUR
  16. NYSTATIN [Concomitant]
     Active Substance: NYSTATIN
  17. HYDROCODONE [Concomitant]
     Active Substance: HYDROCODONE
  18. AMOXICILLIN [Concomitant]
     Active Substance: AMOXICILLIN
     Dosage: DELEYED RELEASE
  19. NALOXONE HCL [Concomitant]
     Active Substance: NALOXONE HYDROCHLORIDE
  20. ONDANSETRON HYDROCHLORIDE [Concomitant]
     Active Substance: ONDANSETRON HYDROCHLORIDE
  21. FAMOTIDINE [Concomitant]
     Active Substance: FAMOTIDINE
  22. PANTOPRAZOLE SODIUM [Concomitant]
     Active Substance: PANTOPRAZOLE SODIUM
     Dosage: DELEYED RELEASE
  23. NYSTATIN [Concomitant]
     Active Substance: NYSTATIN
  24. FAMOTIDINE [Concomitant]
     Active Substance: FAMOTIDINE
  25. SICCAFORTE [Concomitant]
  26. MANUKA OPTIMEL FORTE [Concomitant]
  27. HYCLATE [Concomitant]
  28. CORTISONE [Concomitant]
     Active Substance: CORTISONE

REACTIONS (8)
  - Eye pain [Not Recovered/Not Resolved]
  - Dry eye [Unknown]
  - Wrong technique in product usage process [Unknown]
  - Ocular discomfort [Not Recovered/Not Resolved]
  - Erythema [Unknown]
  - Pruritus [Unknown]
  - Eye irritation [Unknown]
  - Product dose omission issue [Not Recovered/Not Resolved]

NARRATIVE: CASE EVENT DATE: 20231105
